FAERS Safety Report 25994431 (Version 1)
Quarter: 2025Q4

REPORT INFORMATION
  Report Type: Spontaneous
  Country: JP (occurrence: JP)
  Receive Date: 20251104
  Receipt Date: 20251104
  Transmission Date: 20260117
  Serious: Yes (Other)
  Sender: ALEXION PHARMACEUTICALS
  Company Number: JP-ASTRAZENECA-250001687_013120_P_1

PATIENT
  Age: 47 Year
  Sex: Female
  Weight: 32 kg

DRUGS (11)
  1. IMFINZI [Suspect]
     Active Substance: DURVALUMAB
     Indication: Endometrial cancer
     Dosage: 1120 MILLIGRAM, Q3W
     Dates: start: 20241226
  2. IMFINZI [Suspect]
     Active Substance: DURVALUMAB
     Dosage: 1120MG
  3. IMFINZI [Suspect]
     Active Substance: DURVALUMAB
     Dosage: 1120MG
  4. IMFINZI [Suspect]
     Active Substance: DURVALUMAB
     Dosage: 1500MG
  5. IMFINZI [Suspect]
     Active Substance: DURVALUMAB
     Dosage: 1500MG
  6. IMFINZI [Suspect]
     Active Substance: DURVALUMAB
     Dosage: 1500MG
  7. IMFINZI [Suspect]
     Active Substance: DURVALUMAB
     Dosage: 1500MG
  8. PACLITAXEL [Concomitant]
     Active Substance: PACLITAXEL
     Indication: Endometrial cancer
     Dosage: DOSE UNKNOWN
     Route: 065
  9. PACLITAXEL [Concomitant]
     Active Substance: PACLITAXEL
     Dosage: DOSE UNKNOWN
     Route: 065
  10. CARBOPLATIN [Concomitant]
     Active Substance: CARBOPLATIN
     Indication: Endometrial cancer
     Dosage: DOSE UNKNOWN
     Route: 065
  11. CARBOPLATIN [Concomitant]
     Active Substance: CARBOPLATIN
     Dosage: DOSE UNKNOWN
     Route: 065

REACTIONS (3)
  - Hypothyroidism [Not Recovered/Not Resolved]
  - Immune-mediated thyroiditis [Recovered/Resolved]
  - Facial paralysis [Unknown]

NARRATIVE: CASE EVENT DATE: 20250120
